FAERS Safety Report 17216689 (Version 1)
Quarter: 2019Q4

REPORT INFORMATION
  Report Type: Spontaneous
  Country: CN (occurrence: CN)
  Receive Date: 20191230
  Receipt Date: 20191230
  Transmission Date: 20200122
  Serious: Yes (Hospitalization, Other)
  Sender: FDA-Public Use
  Company Number: CN-BAXTER-2019BAX026253

PATIENT
  Age: 7 Year
  Sex: Female
  Weight: 22 kg

DRUGS (2)
  1. ENDOXAN [Suspect]
     Active Substance: CYCLOPHOSPHAMIDE
     Indication: APLASTIC ANAEMIA
     Route: 041
     Dates: start: 20191204, end: 20191206
  2. ENDOXAN [Suspect]
     Active Substance: CYCLOPHOSPHAMIDE
     Dosage: DOSE RE-INTRODUCED
     Route: 041
     Dates: start: 201912

REACTIONS (6)
  - Abdominal pain [Recovering/Resolving]
  - Epistaxis [Unknown]
  - Haematemesis [Unknown]
  - Vomiting [Recovering/Resolving]
  - Blood potassium decreased [Unknown]
  - Erythema [Unknown]

NARRATIVE: CASE EVENT DATE: 201912
